FAERS Safety Report 13790153 (Version 1)
Quarter: 2017Q3

REPORT INFORMATION
  Report Type: Spontaneous
  Country: FR (occurrence: FR)
  Receive Date: 20170725
  Receipt Date: 20170725
  Transmission Date: 20171127
  Serious: Yes (Hospitalization)
  Sender: FDA-Public Use
  Company Number: FR-BAXTER-2017BAX028438

PATIENT
  Age: 59 Year
  Sex: Male
  Weight: 68 kg

DRUGS (6)
  1. ENDOXAN 50 MG, COMPRIM? ENROB? [Suspect]
     Active Substance: CYCLOPHOSPHAMIDE
     Indication: CHRONIC LYMPHOCYTIC LEUKAEMIA STAGE 2
     Dosage: ON DAY1, DAY2 AND DAY3 OF FIRST 4 CYCLES
     Route: 048
  2. MABTHERA [Suspect]
     Active Substance: RITUXIMAB
     Dosage: ROUTE: INTRAVENOUS PERFUSION, CYCLE 5 DAY1
     Route: 042
     Dates: start: 20160301, end: 20160301
  3. ENDOXAN 50 MG, COMPRIM? ENROB? [Suspect]
     Active Substance: CYCLOPHOSPHAMIDE
     Dosage: CYCLE 5, DAY 1,DAY 2, DAY3
     Route: 048
     Dates: start: 20160301, end: 20160303
  4. MABTHERA [Suspect]
     Active Substance: RITUXIMAB
     Indication: CHRONIC LYMPHOCYTIC LEUKAEMIA STAGE 2
     Dosage: ROUTE: INTRAVENOUS PERFUSION, ON DAY 1 OF FIRST 4 CYCLES
     Route: 042
  5. FLUDARA [Suspect]
     Active Substance: FLUDARABINE PHOSPHATE
     Indication: CHRONIC LYMPHOCYTIC LEUKAEMIA STAGE 2
     Dosage: ON DAY1, DAY2 AND DAY3 OF FIRST 4 CYCLES
     Route: 048
  6. FLUDARA [Suspect]
     Active Substance: FLUDARABINE PHOSPHATE
     Dosage: CYCLE 5, DAY 1,DAY 2, DAY3
     Route: 048
     Dates: start: 20160301, end: 20160303

REACTIONS (5)
  - Neutropenia [Not Recovered/Not Resolved]
  - Inflammation [Recovering/Resolving]
  - Lung disorder [Recovered/Resolved]
  - Productive cough [Recovered/Resolved]
  - Pyrexia [Recovered/Resolved]

NARRATIVE: CASE EVENT DATE: 20160301
